FAERS Safety Report 5063724-1 (Version None)
Quarter: 2006Q3

REPORT INFORMATION
  Report Type: 
  Country: None (occurrence: None)
  Receive Date: 20060724
  Receipt Date: 20060708
  Transmission Date: 20061208
  Serious: Yes (Death)
  Sender: FDA-Public Use
  Company Number: 007972

PATIENT
  Age: 21 Year
  Sex: Female

DRUGS (5)
  1. CLARAVIS [Suspect]
     Indication: ACNE CYSTIC
     Dosage: SEE IMAGE
     Route: 048
     Dates: start: 20060124, end: 20060224
  2. CLARAVIS [Suspect]
     Indication: ACNE CYSTIC
     Dosage: SEE IMAGE
     Route: 048
     Dates: start: 20060224, end: 20060405
  3. CLARAVIS [Suspect]
     Indication: ACNE CYSTIC
     Dosage: SEE IMAGE
     Route: 048
     Dates: start: 20060501
  4. YASMIN [Concomitant]
  5. ALLEGRA [Concomitant]

REACTIONS (3)
  - CONVULSION [None]
  - MALAISE [None]
  - PYREXIA [None]
